FAERS Safety Report 4349953-0 (Version None)
Quarter: 2004Q2

REPORT INFORMATION
  Report Type: 
  Country: None (occurrence: None)
  Receive Date: 20040428
  Receipt Date: 20040428
  Transmission Date: 20050107
  Serious: Yes (Other)
  Sender: FDA-Public Use
  Company Number: None

PATIENT
  Sex: Male
  Weight: 100.6985 kg

DRUGS (3)
  1. CRESTOR [Suspect]
     Indication: DYSLIPIDAEMIA
     Dosage: 10MG QD ORAL
     Route: 048
     Dates: start: 20031016, end: 20040120
  2. VENTOLIN [Concomitant]
  3. VIOXX [Concomitant]

REACTIONS (1)
  - DYSPNOEA [None]
